FAERS Safety Report 9258574 (Version 1)
Quarter: 2013Q2

REPORT INFORMATION
  Report Type: Spontaneous
  Country: US (occurrence: US)
  Receive Date: 20130426
  Receipt Date: 20130426
  Transmission Date: 20140414
  Serious: Yes (Hospitalization)
  Sender: FDA-Public Use
  Company Number: US-BANPHARM-20131183

PATIENT
  Age: 37 Year
  Sex: Female

DRUGS (1)
  1. TYLENOL PM [Suspect]
     Dosage: 100 DF,
     Route: 048
     Dates: start: 2012, end: 2012

REACTIONS (18)
  - Intentional overdose [Recovered/Resolved]
  - Loss of consciousness [Recovered/Resolved]
  - Hypothermia [Recovered/Resolved]
  - Bradycardia [Recovered/Resolved]
  - Blood pressure immeasurable [Recovered/Resolved]
  - Unresponsive to stimuli [Recovered/Resolved]
  - Atrial fibrillation [Recovered/Resolved]
  - Ventricular extrasystoles [Recovered/Resolved]
  - Electrocardiogram QRS complex prolonged [Recovered/Resolved]
  - Electrocardiogram QT prolonged [Recovered/Resolved]
  - QRS axis abnormal [Recovered/Resolved]
  - Blood gases abnormal [Recovered/Resolved]
  - Restlessness [Recovered/Resolved]
  - Agitation [Recovered/Resolved]
  - Aspartate aminotransferase increased [Recovered/Resolved]
  - Alanine aminotransferase increased [Recovered/Resolved]
  - International normalised ratio increased [Recovered/Resolved]
  - White blood cell count increased [Recovered/Resolved]
